FAERS Safety Report 13396791 (Version 1)
Quarter: 2017Q2

REPORT INFORMATION
  Report Type: Report from Study
  Country: CA (occurrence: CA)
  Receive Date: 20170403
  Receipt Date: 20170403
  Transmission Date: 20170830
  Serious: Yes (Other)
  Sender: FDA-Public Use
  Company Number: CA-MYLANLABS-2017M1020051

PATIENT

DRUGS (3)
  1. MOXIFLOXACIN. [Suspect]
     Active Substance: MOXIFLOXACIN
     Indication: HELICOBACTER INFECTION
     Route: 065
  2. AMOXICILLIN. [Suspect]
     Active Substance: AMOXICILLIN
     Indication: HELICOBACTER INFECTION
     Route: 065
  3. ESOMEPRAZOLE [Concomitant]
     Active Substance: ESOMEPRAZOLE
     Indication: HELICOBACTER INFECTION
     Route: 065

REACTIONS (9)
  - Depressed mood [Unknown]
  - Anxiety [Unknown]
  - Nightmare [Unknown]
  - Anhedonia [Unknown]
  - Psychotic disorder [Unknown]
  - Hallucination [Unknown]
  - Stress [Unknown]
  - Fear [Unknown]
  - Suicidal ideation [Unknown]
